FAERS Safety Report 8812664 (Version 1)
Quarter: 2012Q4

REPORT INFORMATION
  Report Type: 
  Country: DE (occurrence: DE)
  Receive Date: 20120927
  Receipt Date: 20120927
  Transmission Date: 20130627
  Serious: Yes (Death)
  Sender: FDA-Public Use
  Company Number: GXKR2012DE003061

PATIENT
  Age: 85 Year
  Sex: Female
  Weight: 64 kg

DRUGS (13)
  1. METHOTREXATE [Suspect]
     Indication: RHEUMATOID ARTHRITIS
     Dosage: 10 mg, QW (for years)
     Route: 048
  2. METAMIZOLE [Suspect]
     Indication: PAIN
     Dosage: 30 gtt, QID (at least 2 weeks)
     Route: 048
  3. KALIUM ^VERLA^ [Concomitant]
     Dosage: as needed
  4. MARCUMAR [Concomitant]
  5. NOVODIGAL [Concomitant]
     Dosage: 0.1 mg, QD
  6. TORASEMIDE [Concomitant]
     Dosage: 10 mg, TID
  7. SPIRO [Concomitant]
     Dosage: 25 mg, QD
  8. METOHEXAL [Concomitant]
     Dosage: 25 mg, QD
  9. RAMIPRIL [Concomitant]
     Dosage: 2.5 mg, QD
  10. SPASMEX [Concomitant]
     Dosage: 30 mg, QD
  11. DECORTIN-H [Concomitant]
     Indication: RHEUMATOID ARTHRITIS
     Dosage: 7.5 mg, QD (for years)
     Route: 048
  12. TILIDIN COMP. [Concomitant]
     Dosage: 1 DF, BID
  13. ATOSIL [Concomitant]
     Dosage: 0-0-0-3

REACTIONS (1)
  - Agranulocytosis [Fatal]
